FAERS Safety Report 5964223-2 (Version None)
Quarter: 2008Q4

REPORT INFORMATION
  Report Type: 
  Country: None (occurrence: None)
  Receive Date: 20081124
  Receipt Date: 20081117
  Transmission Date: 20090506
  Serious: Yes (Other)
  Sender: FDA-Public Use
  Company Number: DK-ABBOTT-08P-044-0485327-00

PATIENT
  Sex: Female

DRUGS (5)
  1. HUMIRA [Suspect]
     Indication: RHEUMATOID ARTHRITIS
     Route: 058
     Dates: start: 20070107, end: 20080414
  2. PREDNISOLON DAK [Concomitant]
     Indication: COLITIS ULCERATIVE
     Dates: start: 20071101
  3. PREDNISOLON DAK [Concomitant]
     Indication: RHEUMATOID ARTHRITIS
     Dates: start: 20071213, end: 20080414
  4. SULFASALAZINE [Concomitant]
     Indication: DRUG USE FOR UNKNOWN INDICATION
     Dates: start: 20071213, end: 20080414
  5. METHOTREXATE [Concomitant]
     Indication: RHEUMATOID ARTHRITIS
     Dates: start: 20080107, end: 20080414

REACTIONS (1)
  - LUNG NEOPLASM MALIGNANT [None]
